FAERS Safety Report 9229889 (Version 1)
Quarter: 2013Q2

REPORT INFORMATION
  Report Type: Spontaneous
  Country: US (occurrence: US)
  Receive Date: 20130415
  Receipt Date: 20130415
  Transmission Date: 20140414
  Serious: No
  Sender: FDA-Public Use
  Company Number: US-009507513-1304USA005028

PATIENT
  Sex: Male

DRUGS (4)
  1. SAPHRIS [Suspect]
     Indication: SCHIZOPHRENIA
     Dosage: 5 MG, UNK
     Route: 060
  2. SAPHRIS [Suspect]
     Dosage: 10 MG, UNK
     Route: 060
  3. SEROQUEL [Concomitant]
  4. LEXAPRO [Concomitant]

REACTIONS (4)
  - Hypoaesthesia oral [Recovering/Resolving]
  - Drug ineffective [Unknown]
  - Drug dose omission [Unknown]
  - Product quality issue [Unknown]
